FAERS Safety Report 5650359-2 (Version None)
Quarter: 2008Q1

REPORT INFORMATION
  Report Type: 
  Country: None (occurrence: None)
  Receive Date: 20080304
  Receipt Date: 20080304
  Transmission Date: 20080703
  Serious: Yes (Life-Threatening, Hospitalization, Other)
  Sender: FDA-Public Use
  Company Number: None

PATIENT
  Age: 32 Year
  Sex: Female
  Weight: 63.5036 kg

DRUGS (5)
  1. FENTANYL-12 [Suspect]
     Indication: INJURY
     Dosage: 87 MCG/HR EVERY 2 DAYS TRANSDERMAL
     Route: 062
     Dates: start: 20061002, end: 20071129
  2. FENTANYL-12 [Suspect]
     Indication: PAIN
     Dosage: 87 MCG/HR EVERY 2 DAYS TRANSDERMAL
     Route: 062
     Dates: start: 20061002, end: 20071129
  3. FENTANYL-75 [Suspect]
  4. ACETAMINOPHEN AND OXYCODONE HCL [Concomitant]
  5. CYMBALTA [Concomitant]

REACTIONS (6)
  - ADVERSE DRUG REACTION [None]
  - ANXIETY [None]
  - CONVULSION [None]
  - MENTAL DISORDER [None]
  - PALPITATIONS [None]
  - SUICIDAL IDEATION [None]
